FAERS Safety Report 23390371 (Version 2)
Quarter: 2024Q1

REPORT INFORMATION
  Report Type: Spontaneous
  Country: IT (occurrence: IT)
  Receive Date: 20240111
  Receipt Date: 20240118
  Transmission Date: 20240410
  Serious: Yes (Death, Other)
  Sender: FDA-Public Use
  Company Number: None

PATIENT
  Age: 49 Year
  Sex: Female
  Weight: 70 kg

DRUGS (6)
  1. TRODELVY [Suspect]
     Active Substance: SACITUZUMAB GOVITECAN-HZIY
     Indication: Breast cancer stage IV
     Dosage: 10 MG/KG DAYS 1 AND 8 EVERY 21 DAYS, SECOND CYCLE.
     Route: 042
     Dates: start: 20231215, end: 20231222
  2. LORATADINE [Concomitant]
     Active Substance: LORATADINE
     Indication: Chemotherapy side effect prophylaxis
     Dosage: 10 MG - 1 TABLET IN THE EVENING BEFORE THERAPY AND 1 TABLET IN  THE THREE DAYS AFTER THERAP
     Route: 048
     Dates: start: 20231215, end: 20231226
  3. PREDNISONE [Concomitant]
     Active Substance: PREDNISONE
     Indication: Chemotherapy side effect prophylaxis
     Dosage: 25 MG - 1 TABLET IN THE EVENING BEFORE THERAPY AND 2 TABLETS  AFTER BREAKFAST IN THE 3 DAYS AFTER TH
     Route: 048
     Dates: start: 20231215, end: 20231226
  4. ACETAMINOPHEN [Concomitant]
     Active Substance: ACETAMINOPHEN
     Indication: Chemotherapy side effect prophylaxis
     Dosage: 1000 MG - 1 TABLET IN THE EVENING BEFORE THERAPY AND THEN  AS NEEDED
     Route: 048
     Dates: start: 20231215, end: 20231223
  5. PANTOPRAZOLE SODIUM [Concomitant]
     Active Substance: PANTOPRAZOLE SODIUM
     Indication: Chemotherapy side effect prophylaxis
     Dosage: 20 MG 1 CP/DIE
     Route: 048
     Dates: start: 20230630, end: 20231228
  6. RAMIPRIL [Concomitant]
     Active Substance: RAMIPRIL
     Indication: Hypertension
     Dosage: 2.5MG 1 CP AL D?
     Route: 048
     Dates: start: 20230101, end: 20231228

REACTIONS (4)
  - Hypovolaemic shock [Fatal]
  - Septic shock [Fatal]
  - Febrile bone marrow aplasia [Fatal]
  - Gastrointestinal toxicity [Fatal]

NARRATIVE: CASE EVENT DATE: 20231225
